FAERS Safety Report 7125090-7 (Version None)
Quarter: 2010Q4

REPORT INFORMATION
  Report Type: 
  Country: None (occurrence: None)
  Receive Date: 20101129
  Receipt Date: 20101021
  Transmission Date: 20110411
  Serious: Yes (Other)
  Sender: FDA-Public Use
  Company Number: US-AMGEN-USASP2010001343

PATIENT

DRUGS (1)
  1. SENSIPAR [Suspect]
     Indication: HYPERPARATHYROIDISM PRIMARY

REACTIONS (3)
  - HYPERPARATHYROIDISM PRIMARY [None]
  - NEPHROLITHIASIS [None]
  - PARATHYROID TUMOUR MALIGNANT [None]
